FAERS Safety Report 12118342 (Version 1)
Quarter: 2016Q1

REPORT INFORMATION
  Report Type: Report from Study
  Country: US (occurrence: US)
  Receive Date: 20160226
  Receipt Date: 20160226
  Transmission Date: 20160526
  Serious: No
  Sender: FDA-Public Use
  Company Number: US-AMGEN-USASL2016021884

PATIENT
  Age: 52 Year
  Sex: Female

DRUGS (1)
  1. ENBREL [Suspect]
     Active Substance: ETANERCEPT
     Indication: PSORIASIS
     Dosage: 50 MG, 2 TIMES/WK
     Route: 065
     Dates: start: 20160211

REACTIONS (8)
  - Memory impairment [Unknown]
  - Nausea [Unknown]
  - Dizziness [Unknown]
  - Oral mucosal discolouration [Unknown]
  - Swelling face [Unknown]
  - Glossodynia [Unknown]
  - Tongue discolouration [Unknown]
  - Eye swelling [Unknown]

NARRATIVE: CASE EVENT DATE: 201602
